FAERS Safety Report 7080742-2 (Version None)
Quarter: 2010Q4

REPORT INFORMATION
  Report Type: 
  Country: None (occurrence: None)
  Receive Date: 20101103
  Receipt Date: 20101025
  Transmission Date: 20110411
  Serious: Yes (Hospitalization)
  Sender: FDA-Public Use
  Company Number: JP-JNJFOC-20100302079

PATIENT
  Sex: Male
  Weight: 89 kg

DRUGS (8)
  1. GOLIMUMAB [Suspect]
     Indication: RHEUMATOID ARTHRITIS
     Route: 058
  2. GOLIMUMAB [Suspect]
     Route: 058
  3. PREDNISOLONE [Suspect]
     Indication: RHEUMATOID ARTHRITIS
     Route: 048
  4. TAKEPRON [Concomitant]
     Indication: REFLUX OESOPHAGITIS
     Route: 048
  5. THYRADIN S [Concomitant]
     Indication: THYROIDITIS CHRONIC
     Route: 048
  6. LOXONIN [Concomitant]
     Indication: RHEUMATOID ARTHRITIS
     Route: 048
  7. LIVALO [Concomitant]
     Indication: RHEUMATOID ARTHRITIS
     Route: 048
  8. SODIUM HYALURONATE [Concomitant]
     Indication: PUNCTATE KERATITIS
     Route: 031

REACTIONS (2)
  - CAMPYLOBACTER TEST POSITIVE [None]
  - INTERVERTEBRAL DISCITIS [None]
